FAERS Safety Report 9149307 (Version 3)
Quarter: 2013Q2

REPORT INFORMATION
  Report Type: Report from Study
  Country: BE (occurrence: BE)
  Receive Date: 20130308
  Receipt Date: 20130423
  Transmission Date: 20140414
  Serious: Yes (Death, Hospitalization)
  Sender: FDA-Public Use
  Company Number: BE-BAYER-2013-004168

PATIENT
  Age: 75 Year
  Sex: Male
  Weight: 113 kg

DRUGS (14)
  1. REGORAFENIB [Suspect]
     Indication: COLORECTAL CANCER METASTATIC
     Dosage: 160 MG, QD
     Route: 048
     Dates: start: 20121228, end: 20130108
  2. REGORAFENIB [Suspect]
     Indication: COLORECTAL CANCER METASTATIC
     Dosage: 120 MG, QD
     Route: 048
     Dates: start: 20130207, end: 20130222
  3. MOVICOL [Concomitant]
     Indication: CONSTIPATION PROPHYLAXIS
     Dosage: UNK UNK, PRN
     Route: 048
     Dates: start: 2000
  4. LYSOX [Concomitant]
     Indication: PRODUCTIVE COUGH
     Dosage: DAILY DOSE 600 MG
     Route: 048
     Dates: start: 2000
  5. OMEPRAZOL [Concomitant]
     Indication: PAIN PROPHYLAXIS
     Dosage: 20 MD DAILY
     Route: 048
     Dates: start: 20130109
  6. CONTRAMAL RETARD [Concomitant]
     Indication: PAIN
     Dosage: TOTAL DAILY DOSE: 100MG
     Route: 048
     Dates: start: 20130227
  7. CONTRAMAL RETARD [Concomitant]
     Indication: HEADACHE
  8. TERAZOSIN [Concomitant]
     Indication: PROSTATIC DISORDER
     Dosage: 5MG/D
     Route: 048
     Dates: start: 2000
  9. TERAZOSIN [Concomitant]
     Indication: PROSTATIC DISORDER
     Dosage: DAILY DOSE: 1 CAPS
     Route: 048
     Dates: start: 2009
  10. DAFALGAN [Concomitant]
     Indication: PAIN
     Dosage: ^PRN^
     Route: 048
     Dates: start: 201301
  11. DAFALGAN [Concomitant]
     Indication: HEADACHE
  12. PANTOPRAZOLE [Concomitant]
     Indication: PROPHYLAXIS AGAINST GASTROINTESTINAL ULCER
     Dosage: 20 MG, QD
     Route: 048
     Dates: start: 20130220
  13. XANAX [Concomitant]
     Indication: PROPHYLAXIS
     Dosage: UNK
     Dates: start: 20130220
  14. PRIMPERAN [Concomitant]
     Indication: PROPHYLAXIS OF NAUSEA AND VOMITING
     Dosage: UNK UNK, PRN
     Route: 048
     Dates: start: 20130227

REACTIONS (6)
  - Pyrexia [Recovered/Resolved]
  - Pulmonary embolism [Not Recovered/Not Resolved]
  - Fatigue [Not Recovered/Not Resolved]
  - Decreased appetite [Not Recovered/Not Resolved]
  - Dyspnoea [Not Recovered/Not Resolved]
  - General physical health deterioration [Fatal]
